FAERS Safety Report 4477831-5 (Version None)
Quarter: 2004Q4

REPORT INFORMATION
  Report Type: 
  Country: None (occurrence: None)
  Receive Date: 20041014
  Receipt Date: 20041004
  Transmission Date: 20050328
  Serious: No
  Sender: FDA-Public Use
  Company Number: 2004UW20915

PATIENT
  Sex: Male

DRUGS (2)
  1. LOSEC [Suspect]
     Dosage: 20 MG QOD PO
     Route: 048
  2. LIPITOR [Concomitant]

REACTIONS (1)
  - DISTURBANCE IN ATTENTION [None]
